FAERS Safety Report 8170221-3 (Version None)
Quarter: 2012Q1

REPORT INFORMATION
  Report Type: 
  Country: None (occurrence: None)
  Receive Date: 20120228
  Receipt Date: 20120221
  Transmission Date: 20120608
  Serious: Yes (Other)
  Sender: FDA-Public Use
  Company Number: FR-BAYER-2012-017837

PATIENT
  Age: 60 Year
  Sex: Male
  Weight: 88 kg

DRUGS (14)
  1. OXALIPLATIN [Suspect]
     Indication: HEPATIC CANCER METASTATIC
     Dosage: DAILY DOSE OF 160
     Route: 042
     Dates: end: 20111222
  2. GEMCITABINE [Suspect]
     Indication: HEPATIC CANCER METASTATIC
     Dosage: DAILY DOSE OF 2000
     Route: 042
     Dates: end: 20111221
  3. NEBIVOLOL HCL [Concomitant]
     Indication: HYPERTENSION
     Dosage: 5 MG, UNK
     Route: 048
     Dates: start: 20100101
  4. RUPATADINE [Concomitant]
     Indication: PRURITUS
     Dosage: 10 MG, UNK
     Route: 048
  5. SORAFENIB (RAF KINASE INHIBITOR) [Suspect]
     Indication: HEPATIC NEOPLASM MALIGNANT
     Dosage: UNK
     Route: 048
     Dates: start: 20111026
  6. VALSARTAN  AND HYDROCHLOROTHIAZIDE [Concomitant]
     Indication: HYPERTENSION
     Dosage: 160 MG, UNK
     Route: 048
     Dates: start: 20101201
  7. VITAMIN B6 [Concomitant]
     Indication: HYPOVITAMINOSIS
     Dosage: 3 DF, UNK
     Route: 048
  8. GEMCITABINE [Suspect]
     Indication: HEPATIC NEOPLASM MALIGNANT
     Dosage: UNK
     Route: 042
     Dates: start: 20111026
  9. HUMALOG [Concomitant]
     Indication: DIABETES MELLITUS
     Dosage: UNK
     Route: 058
     Dates: start: 20120118
  10. SORAFENIB (RAF KINASE INHIBITOR) [Suspect]
     Indication: HEPATIC CANCER METASTATIC
     Dosage: DAILY DOSEOF 800
     Route: 048
     Dates: end: 20120104
  11. IPERTEN [Concomitant]
     Indication: HYPERTENSION
     Dosage: UNK
     Route: 048
     Dates: start: 20060101
  12. VITAMIN B1 TAB [Concomitant]
     Indication: HYPOVITAMINOSIS
     Dosage: 3 DF, UNK
     Route: 048
  13. OXALIPLATIN [Suspect]
     Indication: HEPATIC NEOPLASM MALIGNANT
     Dosage: UNK
     Route: 042
     Dates: start: 20111027
  14. LANTUS [Concomitant]
     Indication: DIABETES MELLITUS
     Dosage: UNK
     Route: 058
     Dates: start: 20120118

REACTIONS (2)
  - MUSCLE NECROSIS [None]
  - MYALGIA [None]
